FAERS Safety Report 6848879-8 (Version None)
Quarter: 2010Q3

REPORT INFORMATION
  Report Type: 
  Country: None (occurrence: None)
  Receive Date: 20100716
  Receipt Date: 20071116
  Transmission Date: 20110219
  Serious: No
  Sender: FDA-Public Use
  Company Number: US-PFIZER INC-2007075675

PATIENT
  Sex: Male
  Weight: 92.3 kg

DRUGS (9)
  1. CHANTIX [Suspect]
     Indication: SMOKING CESSATION THERAPY
     Dates: start: 20070801
  2. ACETYLSALICYLIC ACID [Concomitant]
  3. METOPROLOL [Concomitant]
  4. PROZAC [Concomitant]
  5. TOPAMAX [Concomitant]
  6. SYNTHROID [Concomitant]
  7. ALL OTHER THERAPEUTIC PRODUCTS [Concomitant]
  8. RESTORIL [Concomitant]
  9. ZYRTEC [Concomitant]
     Indication: HYPERSENSITIVITY

REACTIONS (7)
  - ABNORMAL DREAMS [None]
  - DIARRHOEA [None]
  - DRUG DOSE OMISSION [None]
  - FLATULENCE [None]
  - IRRITABLE BOWEL SYNDROME [None]
  - MALAISE [None]
  - WEIGHT INCREASED [None]
